FAERS Safety Report 4296701-9 (Version None)
Quarter: 2004Q1

REPORT INFORMATION
  Report Type: 
  Country: None (occurrence: None)
  Receive Date: 20040217
  Receipt Date: 20030528
  Transmission Date: 20041129
  Serious: Yes (Hospitalization, Disabling)
  Sender: FDA-Public Use
  Company Number: WAES 0305USA02888

PATIENT
  Age: 41 Year
  Sex: Male
  Weight: 80 kg

DRUGS (9)
  1. VICODIN [Concomitant]
  2. HYDROCODONE BITARTRATE [Concomitant]
  3. RELAFEN [Concomitant]
     Dates: start: 20010328
  4. VIOXX [Suspect]
     Indication: GOUT
     Route: 048
  5. VIOXX [Suspect]
     Route: 048
     Dates: start: 20001218, end: 20010130
  6. VIOXX [Suspect]
     Route: 048
     Dates: start: 20010131, end: 20010523
  7. VIOXX [Suspect]
     Indication: ARTHRITIS
     Route: 048
  8. VIOXX [Suspect]
     Route: 048
     Dates: start: 20001218, end: 20010130
  9. VIOXX [Suspect]
     Route: 048
     Dates: start: 20010131, end: 20010523

REACTIONS (30)
  - ACUTE MYOCARDIAL INFARCTION [None]
  - ADJUSTMENT DISORDER [None]
  - ADJUSTMENT DISORDER WITH MIXED ANXIETY AND DEPRESSED MOOD [None]
  - ANXIETY [None]
  - ARTHRALGIA [None]
  - BACK PAIN [None]
  - BLOOD PRESSURE INCREASED [None]
  - BLOOD TRIGLYCERIDES INCREASED [None]
  - BREAST PAIN [None]
  - CHEST PAIN [None]
  - CHONDROMALACIA [None]
  - CONTUSION [None]
  - CORONARY ARTERY ATHEROSCLEROSIS [None]
  - DEPRESSION [None]
  - DIZZINESS [None]
  - DYSPEPSIA [None]
  - DYSPNOEA [None]
  - ELECTROCARDIOGRAM ST SEGMENT ELEVATION [None]
  - EXTRASYSTOLES [None]
  - FATIGUE [None]
  - HYPERTENSION [None]
  - HYPOTENSION [None]
  - JOINT SPRAIN [None]
  - KERATOACANTHOMA [None]
  - MITRAL VALVE INCOMPETENCE [None]
  - PERICARDITIS [None]
  - PIGMENTED NAEVUS [None]
  - PNEUMONIA CHLAMYDIAL [None]
  - TRICUSPID VALVE INCOMPETENCE [None]
  - UPPER RESPIRATORY TRACT INFECTION [None]
